FAERS Safety Report 6555347-X (Version None)
Quarter: 2010Q1

REPORT INFORMATION
  Report Type: 
  Country: None (occurrence: None)
  Receive Date: 20100128
  Receipt Date: 20090617
  Transmission Date: 20100710
  Serious: No
  Sender: FDA-Public Use
  Company Number: A0792343A

PATIENT
  Age: 54 Year
  Sex: Female

DRUGS (1)
  1. WELLBUTRIN [Suspect]
     Indication: DEPRESSION
     Dosage: 150MG TWICE PER DAY
     Route: 048
     Dates: start: 20070101

REACTIONS (2)
  - DRUG INEFFECTIVE [None]
  - FATIGUE [None]
